FAERS Safety Report 5524471-2 (Version None)
Quarter: 2007Q4

REPORT INFORMATION
  Report Type: 
  Country: None (occurrence: None)
  Receive Date: 20071122
  Receipt Date: 20071113
  Transmission Date: 20080405
  Serious: Yes (Other)
  Sender: FDA-Public Use
  Company Number: PHBS2007NL17242

PATIENT
  Age: 75 Year
  Sex: Male

DRUGS (9)
  1. EXELON [Suspect]
     Indication: DEMENTIA ALZHEIMER'S TYPE
     Dosage: 6 MG, BID
     Dates: start: 20071030
  2. EXELON [Suspect]
     Dosage: 1.5 MG, QD
  3. EXELON [Suspect]
     Dosage: 3 MG, QD
  4. EXELON [Suspect]
     Dosage: 3 MG, BID
     Route: 048
     Dates: start: 20070607
  5. EXELON [Suspect]
     Dosage: 4.5 MG, BID
     Route: 048
  6. SEROQUEL [Concomitant]
     Dosage: 25 MG, QD
     Route: 065
  7. SINTROM [Concomitant]
     Route: 065
  8. NEBILET [Concomitant]
     Dosage: 5 MG, QD
     Route: 065
  9. PANTOPRAZOLE SODIUM [Concomitant]
     Dosage: 40 MG, QD
     Route: 065

REACTIONS (2)
  - GASTROINTESTINAL DISORDER [None]
  - MUSCLE CONTRACTIONS INVOLUNTARY [None]
